FAERS Safety Report 13566289 (Version 2)
Quarter: 2017Q2

REPORT INFORMATION
  Report Type: Report from Study
  Country: CA (occurrence: CA)
  Receive Date: 20170521
  Receipt Date: 20170610
  Transmission Date: 20170830
  Serious: Yes (Death)
  Sender: FDA-Public Use
  Company Number: CA-HLSUS-2017-CA-000496

PATIENT
  Age: 62 Year
  Sex: Male

DRUGS (6)
  1. METFORMIN [Concomitant]
     Active Substance: METFORMIN HYDROCHLORIDE
     Dosage: 500MG(1/2 TABLET BID)
  2. DEXILANT [Concomitant]
     Active Substance: DEXLANSOPRAZOLE
     Dosage: 60 MG
  3. COLACE [Concomitant]
     Active Substance: DOCUSATE SODIUM
     Dosage: 200MG HS
  4. SENOKOT [Concomitant]
     Active Substance: SENNOSIDES
     Dosage: 8.6MG TID
  5. CLOZARIL [Suspect]
     Active Substance: CLOZAPINE
     Route: 048
     Dates: start: 20040123
  6. PROPANOLOL [Concomitant]
     Active Substance: PROPRANOLOL HYDROCHLORIDE
     Dosage: 10 MG TID

REACTIONS (1)
  - Death [Fatal]
